FAERS Safety Report 7588460-9 (Version None)
Quarter: 2011Q3

REPORT INFORMATION
  Report Type: 
  Country: None (occurrence: None)
  Receive Date: 20110705
  Receipt Date: 20110627
  Transmission Date: 20111222
  Serious: Yes (Hospitalization, Other)
  Sender: FDA-Public Use
  Company Number: US-BAYER-2011-025519

PATIENT
  Sex: Female
  Weight: 136 kg

DRUGS (5)
  1. BENICAR HCT [Concomitant]
     Dosage: UNK
     Dates: start: 20060101
  2. SERAFIN [Concomitant]
  3. YASMIN [Suspect]
     Indication: PREMENSTRUAL SYNDROME
  4. HYDROCHLOROTHIAZIDE [Concomitant]
  5. ZESTRIL [Concomitant]

REACTIONS (11)
  - MIGRAINE [None]
  - ANXIETY [None]
  - CHOLECYSTITIS CHRONIC [None]
  - VOMITING [None]
  - MEMORY IMPAIRMENT [None]
  - CONFUSIONAL STATE [None]
  - ABDOMINAL PAIN UPPER [None]
  - ATTENTION DEFICIT/HYPERACTIVITY DISORDER [None]
  - ACUTE DISSEMINATED ENCEPHALOMYELITIS [None]
  - CENTRAL NERVOUS SYSTEM LESION [None]
  - DEPRESSION [None]
